FAERS Safety Report 6041178-6 (Version None)
Quarter: 2009Q1

REPORT INFORMATION
  Report Type: 
  Country: None (occurrence: None)
  Receive Date: 20090116
  Receipt Date: 20080916
  Transmission Date: 20090719
  Serious: Yes (Other)
  Sender: FDA-Public Use
  Company Number: US-BRISTOL-MYERS SQUIBB COMPANY-14332134

PATIENT
  Age: 57 Year
  Sex: Female
  Weight: 68 kg

DRUGS (9)
  1. ABILIFY [Suspect]
     Indication: CRYING
     Dates: start: 20080815, end: 20080826
  2. ABILIFY [Suspect]
     Indication: HYPERSOMNIA
     Dates: start: 20080815, end: 20080826
  3. EFFEXOR XR [Suspect]
  4. TOPAMAX [Concomitant]
  5. NIACIN [Concomitant]
  6. EVISTA [Concomitant]
  7. VALIUM [Concomitant]
  8. XANAX [Concomitant]
  9. AMBIEN [Concomitant]

REACTIONS (5)
  - AGITATION [None]
  - ANXIETY [None]
  - INSOMNIA [None]
  - KETOACIDOSIS [None]
  - PARADOXICAL DRUG REACTION [None]
